FAERS Safety Report 13262450 (Version 1)
Quarter: 2017Q1

REPORT INFORMATION
  Report Type: Spontaneous
  Country: FR (occurrence: FR)
  Receive Date: 20170223
  Receipt Date: 20170223
  Transmission Date: 20170428
  Serious: Yes (Hospitalization, Other)
  Sender: FDA-Public Use
  Company Number: FR-BAXTER-2017BAX006768

PATIENT
  Age: 75 Year
  Sex: Female
  Weight: 52 kg

DRUGS (10)
  1. ENDOXAN 50 MG, COMPRIM? ENROB? [Suspect]
     Active Substance: CYCLOPHOSPHAMIDE
     Route: 048
     Dates: start: 20141219, end: 20141224
  2. ROVALCYTE [Suspect]
     Active Substance: VALGANCICLOVIR HYDROCHLORIDE
     Indication: ADVERSE EVENT
     Route: 065
     Dates: start: 20150123
  3. ENDOXAN 50 MG, COMPRIM? ENROB? [Suspect]
     Active Substance: CYCLOPHOSPHAMIDE
     Indication: ACQUIRED HAEMOPHILIA WITH ANTI FVIII, XI, OR XIII
     Route: 048
     Dates: start: 20141107, end: 20141218
  4. CORTANCYL [Suspect]
     Active Substance: PREDNISONE
     Dosage: PROGRESSIVE DOSE REDUCTION FROM 60 MG TO 20 MG
     Route: 048
     Dates: start: 20150103
  5. ROCEPHINE [Suspect]
     Active Substance: CEFTRIAXONE SODIUM
     Indication: PROTEUS TEST POSITIVE
  6. TIORFAN [Suspect]
     Active Substance: RACECADOTRIL
     Indication: ADVERSE EVENT
     Route: 065
  7. ROCEPHINE [Suspect]
     Active Substance: CEFTRIAXONE SODIUM
     Indication: KLEBSIELLA TEST POSITIVE
     Route: 065
  8. ROCEPHINE [Suspect]
     Active Substance: CEFTRIAXONE SODIUM
     Indication: ESCHERICHIA URINARY TRACT INFECTION
  9. CORTANCYL [Suspect]
     Active Substance: PREDNISONE
     Indication: ACQUIRED HAEMOPHILIA WITH ANTI FVIII, XI, OR XIII
     Route: 048
     Dates: start: 20141107
  10. ZELITREX [Suspect]
     Active Substance: VALACYCLOVIR HYDROCHLORIDE
     Indication: HERPES SIMPLEX
     Route: 065

REACTIONS (12)
  - Cytomegalovirus infection [Recovered/Resolved]
  - Herpes simplex [Recovered/Resolved]
  - General physical condition abnormal [Unknown]
  - Klebsiella test positive [Recovering/Resolving]
  - Rectal haemorrhage [Recovered/Resolved]
  - Dyspnoea [Unknown]
  - Skin ulcer [Recovered/Resolved]
  - Escherichia urinary tract infection [Recovering/Resolving]
  - Aphthous ulcer [Recovered/Resolved]
  - Diverticulum intestinal [Unknown]
  - Proteus test positive [Recovering/Resolving]
  - Colitis [Recovered/Resolved]

NARRATIVE: CASE EVENT DATE: 20150103
